FAERS Safety Report 13722510 (Version 1)
Quarter: 2017Q3

REPORT INFORMATION
  Report Type: Spontaneous
  Country: US (occurrence: US)
  Receive Date: 20170706
  Receipt Date: 20170706
  Transmission Date: 20171127
  Serious: Yes (Other)
  Sender: FDA-Public Use
  Company Number: US-APOTEX-2017AP013870

PATIENT
  Age: 49 Year
  Sex: Female

DRUGS (3)
  1. IRON [Concomitant]
     Active Substance: IRON
     Indication: PRODUCT USED FOR UNKNOWN INDICATION
     Route: 065
  2. TRANEXAMIC ACID TABLETS [Suspect]
     Active Substance: TRANEXAMIC ACID
     Indication: MENORRHAGIA
     Dosage: 650 MG, UNK
     Route: 065
  3. TRANEXAMIC ACID TABLETS [Suspect]
     Active Substance: TRANEXAMIC ACID
     Dosage: 650 MG, UNK
     Route: 065

REACTIONS (4)
  - Drug ineffective [Unknown]
  - Angiopathy [Recovered/Resolved]
  - Peritumoural oedema [Recovered/Resolved]
  - Tumour thrombosis [Recovered/Resolved]
